FAERS Safety Report 21909597 (Version 1)
Quarter: 2023Q1

REPORT INFORMATION
  Report Type: Spontaneous
  Country: ES (occurrence: ES)
  Receive Date: 20230125
  Receipt Date: 20230125
  Transmission Date: 20230418
  Serious: Yes (Life-Threatening, Other)
  Sender: FDA-Public Use
  Company Number: None

PATIENT
  Age: 99 Year
  Sex: Female

DRUGS (2)
  1. ELIQUIS [Interacting]
     Active Substance: APIXABAN
     Indication: Product used for unknown indication
     Route: 048
     Dates: start: 2022
  2. ENOXAPARIN SODIUM [Interacting]
     Active Substance: ENOXAPARIN SODIUM
     Indication: Hip fracture
     Route: 058
     Dates: start: 20221201

REACTIONS (6)
  - Cardiac failure congestive [Unknown]
  - Haemorrhage [Unknown]
  - Acute kidney injury [Unknown]
  - Anaemia [Unknown]
  - Duplicate therapy error [Unknown]
  - Drug interaction [Unknown]

NARRATIVE: CASE EVENT DATE: 20221201
